FAERS Safety Report 5520844-2 (Version None)
Quarter: 2007Q4

REPORT INFORMATION
  Report Type: 
  Country: None (occurrence: None)
  Receive Date: 20071119
  Receipt Date: 20071114
  Transmission Date: 20080405
  Serious: Yes (Other)
  Sender: FDA-Public Use
  Company Number: A0695051A

PATIENT
  Age: 47 Year
  Sex: Female
  Weight: 66 kg

DRUGS (2)
  1. AVANDIA [Suspect]
     Indication: METABOLIC SYNDROME
     Dosage: 4MG PER DAY
     Route: 048
     Dates: start: 20071103
  2. LISINOPRIL [Concomitant]
     Dates: start: 20070701

REACTIONS (3)
  - ABDOMINAL PAIN [None]
  - ANOREXIA [None]
  - HYPOGLYCAEMIA [None]
